FAERS Safety Report 21340872 (Version 1)
Quarter: 2022Q3

REPORT INFORMATION
  Report Type: Spontaneous
  Country: DK (occurrence: DK)
  Receive Date: 20220916
  Receipt Date: 20220916
  Transmission Date: 20221027
  Serious: Yes (Hospitalization, Other)
  Sender: FDA-Public Use
  Company Number: None

PATIENT
  Age: 55 Year
  Sex: Male

DRUGS (2)
  1. KENALOG [Suspect]
     Active Substance: TRIAMCINOLONE ACETONIDE
     Indication: Arthritis
     Dosage: STRENGTH: UNKNOWN
     Route: 014
     Dates: start: 20200513, end: 20200513
  2. DEPO-MEDROL [Suspect]
     Active Substance: METHYLPREDNISOLONE ACETATE
     Indication: Arthritis
     Dosage: STRENGTH: 40MG/ML
     Route: 014
     Dates: start: 20191204, end: 20191204

REACTIONS (2)
  - Type 2 diabetes mellitus [Unknown]
  - Psoriatic arthropathy [Unknown]

NARRATIVE: CASE EVENT DATE: 20200525
